FAERS Safety Report 15932306 (Version 1)
Quarter: 2019Q1

REPORT INFORMATION
  Report Type: Spontaneous
  Country: GB (occurrence: GB)
  Receive Date: 20190207
  Receipt Date: 20190207
  Transmission Date: 20190417
  Serious: Yes (Other)
  Sender: FDA-Public Use
  Company Number: GB-TEVA-2019-GB-1006993

PATIENT
  Age: 40 Year
  Sex: Female
  Weight: 64.41 kg

DRUGS (9)
  1. VITAMIN D [Concomitant]
     Active Substance: CHOLECALCIFEROL
  2. ASCORBIC ACID. [Concomitant]
     Active Substance: ASCORBIC ACID
  3. SUMATRIPTAN. [Suspect]
     Active Substance: SUMATRIPTAN
     Indication: MIGRAINE
     Route: 048
     Dates: start: 20190109, end: 20190109
  4. CALCIUM [Concomitant]
     Active Substance: CALCIUM
  5. FOLIC ACID. [Concomitant]
     Active Substance: FOLIC ACID
  6. MAGNESIUM [Concomitant]
     Active Substance: MAGNESIUM
  7. LORATADINE. [Concomitant]
     Active Substance: LORATADINE
  8. IRON [Concomitant]
     Active Substance: IRON
  9. AMITRIPTYLINE [Concomitant]
     Active Substance: AMITRIPTYLINE

REACTIONS (7)
  - Neck pain [Recovered/Resolved with Sequelae]
  - Condition aggravated [Recovered/Resolved with Sequelae]
  - Dysarthria [Recovered/Resolved with Sequelae]
  - Pain in jaw [Recovered/Resolved]
  - Vision blurred [Recovered/Resolved with Sequelae]
  - Nausea [Recovered/Resolved with Sequelae]
  - Dizziness [Recovered/Resolved with Sequelae]

NARRATIVE: CASE EVENT DATE: 20190109
